FAERS Safety Report 8165128 (Version 3)
Quarter: 2014Q1

REPORT INFORMATION
  Report Type: Spontaneous
  Country: US (occurrence: US)
  Receive Date: 20111003
  Receipt Date: 20140307
  Transmission Date: 20141002
  Serious: Yes (Other)
  Sender: FDA-Public Use
  Company Number: US-RANBAXY-2011US-48504

PATIENT
  Age: 21 Year
  Sex: Female

DRUGS (3)
  1. TOPIRAMATE [Suspect]
     Indication: MIGRAINE
     Dosage: 100 MG, BID
     Route: 065
     Dates: start: 201005
  2. TOPIRAMATE [Suspect]
     Indication: MIGRAINE
     Dosage: INCREASED TO 100 MG IN THE MORNING AND 150 MG AT BEDTIME
     Route: 065
     Dates: end: 201101
  3. TOPIRAMATE [Suspect]
     Indication: MIGRAINE
     Dosage: UNK
     Route: 065
     Dates: end: 20110206

REACTIONS (1)
  - Dissociative disorder [Recovered/Resolved]
